FAERS Safety Report 7016391-1 (Version None)
Quarter: 2010Q3

REPORT INFORMATION
  Report Type: 
  Country: None (occurrence: None)
  Receive Date: 20100909
  Receipt Date: 20100519
  Transmission Date: 20110219
  Serious: Yes (Hospitalization)
  Sender: FDA-Public Use
  Company Number: 2010SP027973

PATIENT
  Age: 60 Year
  Sex: Female

DRUGS (5)
  1. SAPHRIS [Suspect]
     Indication: BIPOLAR DISORDER
     Dosage: 10 MG ; HS ; SL
     Route: 060
     Dates: start: 20100419, end: 20100523
  2. CLONIDINE [Concomitant]
  3. ALTACE [Concomitant]
  4. HYDROCHLOROTHIAZIDE [Concomitant]
  5. ABILIFY [Concomitant]

REACTIONS (3)
  - HYPOTENSION [None]
  - INAPPROPRIATE SCHEDULE OF DRUG ADMINISTRATION [None]
  - SYNCOPE [None]
